FAERS Safety Report 4879794-7 (Version None)
Quarter: 2006Q1

REPORT INFORMATION
  Report Type: 
  Country: None (occurrence: None)
  Receive Date: 20060113
  Receipt Date: 20060111
  Transmission Date: 20060701
  Serious: Yes (Hospitalization)
  Sender: FDA-Public Use
  Company Number: ES-GLAXOSMITHKLINE-B0406354A

PATIENT
  Age: 65 Year
  Sex: Male

DRUGS (1)
  1. AVODART [Suspect]
     Indication: BENIGN PROSTATIC HYPERPLASIA
     Dosage: 50MG PER DAY
     Route: 048

REACTIONS (3)
  - BLOOD AMYLASE INCREASED [None]
  - ERYTHEMA [None]
  - OEDEMA PERIPHERAL [None]
